FAERS Safety Report 23780380 (Version 1)
Quarter: 2024Q2

REPORT INFORMATION
  Report Type: Spontaneous
  Country: BG (occurrence: BG)
  Receive Date: 20240424
  Receipt Date: 20240424
  Transmission Date: 20240715
  Serious: Yes (Other)
  Sender: FDA-Public Use
  Company Number: BG-BRISTOL-MYERS SQUIBB COMPANY-2024-063692

PATIENT
  Age: 58 Year
  Sex: Male

DRUGS (4)
  1. OPDIVO [Suspect]
     Active Substance: NIVOLUMAB
     Indication: Metastatic renal cell carcinoma
     Dosage: OVER 30 MINUTES STARTED: 4 CYCLES
     Dates: start: 20230208
  2. OPDIVO [Suspect]
     Active Substance: NIVOLUMAB
     Dosage: OVER 30 MINUTES
     Dates: start: 20230427
  3. YERVOY [Suspect]
     Active Substance: IPILIMUMAB
     Indication: Metastatic renal cell carcinoma
     Dosage: OVER 30 MINUTES EVERY 21 DAY STARTED: 4 CYCLES
     Dates: start: 20230208
  4. DENOSUMAB [Concomitant]
     Active Substance: DENOSUMAB
     Indication: Product used for unknown indication
     Dosage: EVERY ON 28 DAYS
     Route: 058
     Dates: start: 20230427

REACTIONS (3)
  - Necrotic lymphadenopathy [Unknown]
  - Bone lesion [Unknown]
  - Tumour pseudoprogression [Unknown]

NARRATIVE: CASE EVENT DATE: 20230101
